FAERS Safety Report 14426129 (Version 3)
Quarter: 2018Q1

REPORT INFORMATION
  Report Type: Report from Study
  Country: IT (occurrence: IT)
  Receive Date: 20180123
  Receipt Date: 20180228
  Transmission Date: 20180509
  Serious: Yes (Hospitalization)
  Sender: FDA-Public Use
  Company Number: IT-PFIZER INC-2018025526

PATIENT
  Age: 70 Year
  Sex: Male
  Weight: 69 kg

DRUGS (5)
  1. OMNIC [Concomitant]
     Active Substance: TAMSULOSIN HYDROCHLORIDE
     Indication: BENIGN PROSTATIC HYPERPLASIA
     Dosage: UNK
     Route: 048
     Dates: start: 201704
  2. CRIZOTINIB [Suspect]
     Active Substance: CRIZOTINIB
     Indication: NON-SMALL CELL LUNG CANCER
     Dosage: 250 MG, 2X/DAY
     Dates: start: 20170904, end: 20180117
  3. LASIX [Concomitant]
     Active Substance: FUROSEMIDE
     Indication: CEREBROVASCULAR ACCIDENT
     Dosage: UNK
     Route: 048
     Dates: start: 20171128
  4. SELEPARINA [Concomitant]
     Active Substance: NADROPARIN CALCIUM
     Indication: CEREBROVASCULAR ACCIDENT
     Dosage: UNK
     Route: 058
     Dates: start: 20171017
  5. TORVAST [Concomitant]
     Active Substance: ATORVASTATIN
     Indication: CEREBROVASCULAR ACCIDENT
     Dosage: UNK
     Route: 048
     Dates: start: 201703

REACTIONS (1)
  - Renal cyst infection [Recovered/Resolved]

NARRATIVE: CASE EVENT DATE: 20180109
